FAERS Safety Report 13462991 (Version 2)
Quarter: 2017Q2

REPORT INFORMATION
  Report Type: Report from Study
  Country: US (occurrence: US)
  Receive Date: 20170420
  Receipt Date: 20170421
  Transmission Date: 20170830
  Serious: Yes (Hospitalization, Other)
  Sender: FDA-Public Use
  Company Number: US-JNJFOC-20170416551

PATIENT
  Weight: 76 kg

DRUGS (4)
  1. REMICADE [Suspect]
     Active Substance: INFLIXIMAB
     Indication: CROHN^S DISEASE
     Route: 042
  2. REMICADE [Suspect]
     Active Substance: INFLIXIMAB
     Indication: CROHN^S DISEASE
     Route: 042
  3. METHOTREXATE. [Concomitant]
     Active Substance: METHOTREXATE
     Indication: CROHN^S DISEASE
     Route: 065
  4. REMICADE [Suspect]
     Active Substance: INFLIXIMAB
     Indication: CROHN^S DISEASE
     Route: 042
     Dates: start: 2007

REACTIONS (14)
  - Rash generalised [Unknown]
  - Post procedural inflammation [Unknown]
  - Frustration tolerance decreased [Unknown]
  - Pyrexia [Unknown]
  - Viral upper respiratory tract infection [Unknown]
  - Infection [Unknown]
  - General physical health deterioration [Unknown]
  - Palpitations [Unknown]
  - Intestinal obstruction [Unknown]
  - Influenza [Unknown]
  - Malaise [Unknown]
  - Somnolence [Unknown]
  - Incorrect dose administered [Unknown]
  - Off label use [Unknown]
